FAERS Safety Report 5816092-9 (Version None)
Quarter: 2008Q3

REPORT INFORMATION
  Report Type: 
  Country: None (occurrence: None)
  Receive Date: 20080717
  Receipt Date: 20070927
  Transmission Date: 20090109
  Serious: Yes (Disabling)
  Sender: FDA-Public Use
  Company Number: SP01584

PATIENT
  Age: 61 Year
  Sex: Male
  Weight: 106.5953 kg

DRUGS (2)
  1. XIFAXAN [Suspect]
     Indication: POUCHITIS
     Dosage: 1200 MG (400 MG,3 IN 1 D),ORAL
     Route: 048
     Dates: start: 20070901, end: 20070901
  2. ALLOPURINOL [Concomitant]

REACTIONS (1)
  - ARTHRALGIA [None]
